FAERS Safety Report 6664680-2 (Version None)
Quarter: 2010Q1

REPORT INFORMATION
  Report Type: 
  Country: None (occurrence: None)
  Receive Date: 20100330
  Receipt Date: 20100219
  Transmission Date: 20100710
  Serious: Yes (Hospitalization)
  Sender: FDA-Public Use
  Company Number: 6058165

PATIENT
  Age: 53 Year
  Sex: Female

DRUGS (6)
  1. LEVOTHYROXINE SODIUM [Suspect]
     Indication: THYROID CANCER
     Dosage: 100 MCG (100 MCG, 1 IN 1 D), ORAL
     Route: 048
     Dates: start: 20070101
  2. MINCIPATCH SOLUTION (ORAL SOLUTION) (GLYCERIN, SORBITOL, JAVA TEA, ELD [Suspect]
     Indication: WEIGHT LOSS DIET
     Dosage: 15 ML (15 ML, 1 IN 1 D), ORAL
     Route: 048
     Dates: start: 20090201, end: 20100101
  3. ELIXIR AMAIGRISSANT (CIDER VINEGAR, CHICORY, ROYAL JELLY, MEADOW SWEET [Suspect]
     Indication: WEIGHT LOSS DIET
     Dosage: ORAL
     Route: 048
     Dates: start: 20090201, end: 20100101
  4. MINCIPATCH SKIN PATCH [Concomitant]
  5. CYNOMEL (LIOTHYRONIN SODIUM) [Concomitant]
  6. PROTON PUMP INHIBITOR [Concomitant]

REACTIONS (8)
  - BLOOD THYROID STIMULATING HORMONE INCREASED [None]
  - DEHYDRATION [None]
  - DRUG INEFFECTIVE [None]
  - DRUG INTERACTION [None]
  - HAEMOGLOBIN DECREASED [None]
  - HELICOBACTER GASTRITIS [None]
  - THYROXINE FREE DECREASED [None]
  - TRI-IODOTHYRONINE DECREASED [None]
